FAERS Safety Report 8182912-9 (Version None)
Quarter: 2012Q1

REPORT INFORMATION
  Report Type: 
  Country: None (occurrence: None)
  Receive Date: 20120305
  Receipt Date: 20120222
  Transmission Date: 20120608
  Serious: Yes (Life-Threatening)
  Sender: FDA-Public Use
  Company Number: JP-BRISTOL-MYERS SQUIBB COMPANY-15950611

PATIENT
  Age: 76 Year
  Sex: Male
  Weight: 50 kg

DRUGS (18)
  1. MILMAG [Concomitant]
  2. MAINTENANCE MEDIUM [Concomitant]
     Dosage: INJECTION SOLDEM
  3. LACTEC [Concomitant]
     Dosage: INJECTION
  4. VITAMEDIN [Concomitant]
  5. BETAMETHASONE [Concomitant]
     Dosage: SYRUP
     Dates: start: 20110524, end: 20110807
  6. MIDAZOLAM [Concomitant]
     Dates: start: 20110627, end: 20110807
  7. KETALAR [Concomitant]
     Dosage: INJECTION
  8. MUCODYNE [Concomitant]
     Dosage: SYRUP
     Dates: start: 20110607, end: 20110805
  9. ALFACALCIDOL [Concomitant]
     Dosage: CALFINA TAB
     Dates: start: 20110607, end: 20110805
  10. ALPRAZOLAM [Concomitant]
     Dosage: TABLET
     Dates: start: 20110716, end: 20110804
  11. ABILIFY [Suspect]
     Indication: DELIRIUM
     Route: 048
     Dates: start: 20110719, end: 20110726
  12. ZOSYN [Concomitant]
     Route: 041
     Dates: start: 20110703, end: 20110726
  13. METILON [Concomitant]
  14. MORPHINE [Concomitant]
  15. LANSOPRAZOLE [Concomitant]
  16. LAC-B [Concomitant]
     Dosage: ORAL POWDER
     Route: 048
  17. KENTAN [Concomitant]
     Dosage: GRANULES
     Dates: start: 20110617, end: 20110804
  18. THYROID [Concomitant]
     Dosage: THYRADIN,TAB
     Dates: start: 20110622, end: 20110802

REACTIONS (2)
  - GRANULOCYTOPENIA [None]
  - PANCYTOPENIA [None]
